FAERS Safety Report 5261993-6 (Version None)
Quarter: 2007Q1

REPORT INFORMATION
  Report Type: 
  Country: None (occurrence: None)
  Receive Date: 20070308
  Receipt Date: 20070227
  Transmission Date: 20070707
  Serious: Yes (Hospitalization)
  Sender: FDA-Public Use
  Company Number: 2006SP001929

PATIENT
  Age: 49 Year
  Sex: Male
  Weight: 90.7194 kg

DRUGS (7)
  1. PEG-INTRON [Suspect]
     Indication: HEPATITIS C
     Dosage: 150 MCG; QW; SC
     Route: 058
     Dates: start: 20060810
  2. REBETOL [Suspect]
     Indication: HEPATITIS C
     Dosage: 600 MG; BID; PO
     Route: 048
     Dates: start: 20060810
  3. ADVAIR DISKUS 100/50 [Concomitant]
  4. ALBUTEROL SULFATE /00139502/ [Concomitant]
  5. CAMPRAL [Concomitant]
  6. COMBIVENT /01033501/ [Concomitant]
  7. RANITIDINE HYDROCHLORIDE [Concomitant]

REACTIONS (10)
  - CORNEAL DISORDER [None]
  - CORNEAL EROSION [None]
  - CORNEAL THINNING [None]
  - DECREASED APPETITE [None]
  - DEPRESSION [None]
  - HYPERTENSION [None]
  - ISCHAEMIA [None]
  - MOOD SWINGS [None]
  - SUICIDAL IDEATION [None]
  - VISION BLURRED [None]
